FAERS Safety Report 19356660 (Version 2)
Quarter: 2021Q4

REPORT INFORMATION
  Report Type: Spontaneous
  Country: KR (occurrence: KR)
  Receive Date: 20210601
  Receipt Date: 20211104
  Transmission Date: 20220304
  Serious: Yes (Hospitalization)
  Sender: FDA-Public Use
  Company Number: KR-AMGEN-KORSP2021082759

PATIENT
  Age: 81 Year
  Sex: Female

DRUGS (36)
  1. FILGRASTIM [Suspect]
     Active Substance: FILGRASTIM
     Indication: Product used for unknown indication
     Dosage: UNK UNK, QD
     Route: 065
     Dates: start: 20150115, end: 20150115
  2. FILGRASTIM [Suspect]
     Active Substance: FILGRASTIM
     Dosage: UNK
     Route: 065
     Dates: start: 20150216, end: 20150216
  3. DECITABINE [Concomitant]
     Active Substance: DECITABINE
     Indication: Product used for unknown indication
     Dosage: 20 UNK, QD
     Route: 065
     Dates: start: 20150105, end: 20150109
  4. DECITABINE [Concomitant]
     Active Substance: DECITABINE
     Dosage: 20 UNK, QD
     Route: 065
     Dates: start: 20150202, end: 20150206
  5. ACETYLCYSTEINE [Concomitant]
     Active Substance: ACETYLCYSTEINE
     Indication: Product used for unknown indication
     Dosage: 200 MILLIGRAM, QD
     Route: 065
     Dates: start: 20150115, end: 20150201
  6. CEFEPIME [Concomitant]
     Active Substance: CEFEPIME HYDROCHLORIDE
     Indication: Product used for unknown indication
     Dosage: 2 UNK, QD
     Route: 065
     Dates: start: 20150206, end: 20150206
  7. CEFEPIME [Concomitant]
     Active Substance: CEFEPIME HYDROCHLORIDE
     Dosage: 2 UNK, QD
     Route: 065
     Dates: start: 20150228, end: 20150228
  8. CHLORHEXIDINE [Concomitant]
     Active Substance: CHLORHEXIDINE
     Indication: Product used for unknown indication
     Dosage: 100 UNK, QD
     Route: 065
     Dates: start: 20150105, end: 20150105
  9. CHLORHEXIDINE [Concomitant]
     Active Substance: CHLORHEXIDINE
     Dosage: 100 UNK, QD
     Route: 065
     Dates: start: 20150202, end: 20150202
  10. CHLORPHENIRAMINE MALEATE [Concomitant]
     Active Substance: CHLORPHENIRAMINE MALEATE
     Indication: Product used for unknown indication
     Dosage: 4 MILLIGRAM, QD
     Route: 065
     Dates: start: 20150105, end: 20150105
  11. CHLORPHENIRAMINE MALEATE [Concomitant]
     Active Substance: CHLORPHENIRAMINE MALEATE
     Dosage: 4 MILLIGRAM, QD
     Route: 065
     Dates: start: 20150108, end: 20150108
  12. CHLORPHENIRAMINE MALEATE [Concomitant]
     Active Substance: CHLORPHENIRAMINE MALEATE
     Dosage: 4 MILLIGRAM, QD
     Route: 065
     Dates: start: 20150109, end: 20150109
  13. CHLORPHENIRAMINE MALEATE [Concomitant]
     Active Substance: CHLORPHENIRAMINE MALEATE
     Dosage: 4 MILLIGRAM, QD
     Route: 065
     Dates: start: 20150115, end: 20150115
  14. CHLORPHENIRAMINE MALEATE [Concomitant]
     Active Substance: CHLORPHENIRAMINE MALEATE
     Dosage: 4 MILLIGRAM, QD
     Route: 065
     Dates: start: 20150204, end: 20150204
  15. CHLORPHENIRAMINE MALEATE [Concomitant]
     Active Substance: CHLORPHENIRAMINE MALEATE
     Dosage: 4 MILLIGRAM, QD
     Route: 065
     Dates: start: 20150205, end: 20150205
  16. CHLORPHENIRAMINE MALEATE [Concomitant]
     Active Substance: CHLORPHENIRAMINE MALEATE
     Dosage: 4 MILLIGRAM, QD
     Route: 065
     Dates: start: 20150216, end: 20150216
  17. CIMETIDINE [Concomitant]
     Active Substance: CIMETIDINE
     Indication: Product used for unknown indication
     Dosage: 200 MILLIGRAM, QD
     Route: 065
     Dates: start: 20150216, end: 20150216
  18. DIAZEPAM [Concomitant]
     Active Substance: DIAZEPAM
     Indication: Product used for unknown indication
     Dosage: 2 MILLIGRAM, QD
     Route: 065
     Dates: start: 20150216, end: 20150216
  19. LANSOPRAZOLE [Concomitant]
     Active Substance: LANSOPRAZOLE
     Indication: Product used for unknown indication
     Dosage: 15 MILLIGRAM, QD
     Dates: start: 20150216, end: 20150224
  20. LEVOFLOXACIN HEMIHYDRATE [Concomitant]
     Active Substance: LEVOFLOXACIN
     Indication: Product used for unknown indication
     Dosage: 500 MILLIGRAM, QD
     Route: 065
     Dates: start: 20150105, end: 20150106
  21. LEVOFLOXACIN HEMIHYDRATE [Concomitant]
     Active Substance: LEVOFLOXACIN
     Dosage: 250 MILLIGRAM, QD
     Route: 065
     Dates: start: 20150106, end: 20150106
  22. LEVOFLOXACIN HEMIHYDRATE [Concomitant]
     Active Substance: LEVOFLOXACIN
     Dosage: 250 MILLIGRAM, QD
     Route: 065
     Dates: start: 20150108, end: 20150112
  23. LEVOFLOXACIN HEMIHYDRATE [Concomitant]
     Active Substance: LEVOFLOXACIN
     Dosage: 500 MILLIGRAM, QD
     Route: 065
     Dates: start: 20150108, end: 20150112
  24. LEVOFLOXACIN HEMIHYDRATE [Concomitant]
     Active Substance: LEVOFLOXACIN
     Dosage: 500 MILLIGRAM, QD
     Route: 065
     Dates: start: 20150115, end: 20150225
  25. MORPHINE [Concomitant]
     Active Substance: MORPHINE
     Indication: Product used for unknown indication
     Dosage: 2 MILLIGRAM, QD
     Route: 065
     Dates: start: 20150206, end: 20150206
  26. NAPROXEN [Concomitant]
     Active Substance: NAPROXEN
     Indication: Product used for unknown indication
     Dosage: 275 MILLIGRAM, QD
     Route: 065
     Dates: start: 20150206, end: 20150211
  27. PARACETA [Concomitant]
     Indication: Product used for unknown indication
     Dosage: 650 MILLIGRAM, QD
     Route: 065
     Dates: start: 20150108, end: 20150114
  28. PARACETA [Concomitant]
     Dosage: 1300 MILLIGRAM, QD
     Route: 065
     Dates: start: 20150202, end: 20150202
  29. PARACETA [Concomitant]
     Dosage: 1300 MILLIGRAM, QD
     Route: 065
     Dates: start: 20150206, end: 20150211
  30. PIPERACILLIN [Concomitant]
     Active Substance: PIPERACILLIN
     Indication: Product used for unknown indication
     Dosage: 4.5 UNK, QD
     Route: 065
     Dates: start: 20150105, end: 20150106
  31. PIPERACILLIN [Concomitant]
     Active Substance: PIPERACILLIN
     Dosage: 2.25 UNK, QD
     Route: 065
     Dates: start: 20150107, end: 20150109
  32. POSACONAZOLE [Concomitant]
     Active Substance: POSACONAZOLE
     Indication: Product used for unknown indication
     Dosage: 5 UNK, QD
     Route: 065
     Dates: start: 20150105
  33. PROPACETAMOL [Concomitant]
     Active Substance: PROPACETAMOL
     Indication: Product used for unknown indication
     Dosage: 1 UNK, QD
     Route: 065
     Dates: start: 20150106, end: 20150107
  34. PROPACETAMOL [Concomitant]
     Active Substance: PROPACETAMOL
     Dosage: 1 UNK, QD
     Route: 065
     Dates: start: 20150206, end: 20150206
  35. TRAMADOL HYDROCHLORIDE [Concomitant]
     Active Substance: TRAMADOL HYDROCHLORIDE
     Indication: Product used for unknown indication
     Dosage: 50 MILLIGRAM, QD
     Route: 065
     Dates: start: 20150203, end: 20150203
  36. ZOLPIDEM [Concomitant]
     Active Substance: ZOLPIDEM TARTRATE
     Indication: Product used for unknown indication
     Dosage: 6.25 MILLIGRAM, QD
     Route: 065
     Dates: start: 20150203, end: 20150203

REACTIONS (1)
  - Influenza like illness [Not Recovered/Not Resolved]
